FAERS Safety Report 14648491 (Version 1)
Quarter: 2018Q1

REPORT INFORMATION
  Report Type: Spontaneous
  Country: DE (occurrence: DE)
  Receive Date: 20180316
  Receipt Date: 20180316
  Transmission Date: 20180509
  Serious: Yes (Hospitalization, Other)
  Sender: FDA-Public Use
  Company Number: DE-BRISTOL-MYERS SQUIBB COMPANY-BMS-2018-022394

PATIENT
  Age: 82 Year
  Sex: Female
  Weight: 79.8 kg

DRUGS (1)
  1. ELIQUIS [Suspect]
     Active Substance: APIXABAN
     Indication: PRODUCT USED FOR UNKNOWN INDICATION
     Route: 065

REACTIONS (6)
  - Influenza [Unknown]
  - Haemorrhoidal haemorrhage [Unknown]
  - Infection [Unknown]
  - Urinary tract infection [Unknown]
  - Cataract [Unknown]
  - Haemorrhage intracranial [Unknown]
